FAERS Safety Report 25353502 (Version 2)
Quarter: 2025Q2

REPORT INFORMATION
  Report Type: Report from Study
  Country: US (occurrence: US)
  Receive Date: 20250523
  Receipt Date: 20250602
  Transmission Date: 20250717
  Serious: Yes (Other)
  Sender: MALLINCKRODT
  Company Number: US-MALLINCKRODT-MNK202502945

PATIENT
  Age: 44 Year
  Sex: Female
  Weight: 270 kg

DRUGS (5)
  1. CORTICOTROPIN [Suspect]
     Active Substance: CORTICOTROPIN
     Indication: Rheumatoid arthritis
     Route: 058
     Dates: start: 20250512, end: 202505
  2. ORENCIA [Suspect]
     Active Substance: ABATACEPT
     Indication: Product used for unknown indication
  3. ARMOUR THYROID [Concomitant]
     Active Substance: THYROID, PORCINE
     Indication: Hypothyroidism
     Route: 048
  4. NALTREX [Concomitant]
  5. COMBIPATCH [Concomitant]
     Active Substance: ESTRADIOL\NORETHINDRONE ACETATE
     Dosage: 0.05MG-0.14MG
     Route: 062

REACTIONS (8)
  - Rheumatoid arthritis [Not Recovered/Not Resolved]
  - Pruritus [Unknown]
  - Lymphadenopathy [Unknown]
  - Hypersomnia [Unknown]
  - Injection site bruising [Unknown]
  - Injection site swelling [Unknown]
  - Hypersensitivity [Unknown]
  - Fatigue [Unknown]

NARRATIVE: CASE EVENT DATE: 20250101
